FAERS Safety Report 24876912 (Version 1)
Quarter: 2025Q1

REPORT INFORMATION
  Report Type: Spontaneous
  Country: US (occurrence: US)
  Receive Date: 20250123
  Receipt Date: 20250123
  Transmission Date: 20250409
  Serious: No
  Sender: MERCK
  Company Number: US-009507513-2501USA000042

PATIENT
  Sex: Female
  Weight: 89.8 kg

DRUGS (16)
  1. WINREVAIR [Suspect]
     Active Substance: SOTATERCEPT-CSRK
     Indication: Pulmonary arterial hypertension
     Route: 058
  2. REMODULIN [Suspect]
     Active Substance: TREPROSTINIL
     Indication: Pulmonary arterial hypertension
     Route: 041
     Dates: start: 2018
  3. REMODULIN [Suspect]
     Active Substance: TREPROSTINIL
     Route: 041
     Dates: start: 20210412
  4. FLUTICASONE PROPIONATE [Concomitant]
     Active Substance: FLUTICASONE PROPIONATE
  5. AMITRIPTYLINE HYDROCHLORIDE [Concomitant]
     Active Substance: AMITRIPTYLINE HYDROCHLORIDE
  6. PROTONIX [Concomitant]
     Active Substance: PANTOPRAZOLE SODIUM
  7. KLOR-CON M20 [Concomitant]
     Active Substance: POTASSIUM CHLORIDE
  8. ADCIRCA [Concomitant]
     Active Substance: TADALAFIL
  9. METOPROLOL SUCCINATE [Concomitant]
     Active Substance: METOPROLOL SUCCINATE
  10. OPSUMIT [Concomitant]
     Active Substance: MACITENTAN
  11. OXYGEN [Concomitant]
     Active Substance: OXYGEN
  12. BUMETANIDE [Concomitant]
     Active Substance: BUMETANIDE
  13. SPIRONOLACTONE [Concomitant]
     Active Substance: SPIRONOLACTONE
  14. CYMBALTA [Concomitant]
     Active Substance: DULOXETINE HYDROCHLORIDE
  15. ZOFRAN [Concomitant]
     Active Substance: ONDANSETRON HYDROCHLORIDE
  16. DIPHENHYDRAMINE HYDROCHLORIDE [Concomitant]
     Active Substance: DIPHENHYDRAMINE HYDROCHLORIDE

REACTIONS (1)
  - Subcutaneous drug absorption impaired [Unknown]
